FAERS Safety Report 15193517 (Version 1)
Quarter: 2018Q3

REPORT INFORMATION
  Report Type: Spontaneous
  Country: DE (occurrence: DE)
  Receive Date: 20180725
  Receipt Date: 20180725
  Transmission Date: 20181010
  Serious: Yes (Other)
  Sender: FDA-Public Use
  Company Number: DE-DRREDDYS-GER/GER/18/0102132

PATIENT
  Age: 29 Year
  Sex: Male
  Weight: 75 kg

DRUGS (2)
  1. LEVOFLOXACIN. [Suspect]
     Active Substance: LEVOFLOXACIN
     Indication: PROSTATITIS
     Route: 048
     Dates: start: 20170115
  2. CIPROFLOXACIN. [Suspect]
     Active Substance: CIPROFLOXACIN
     Indication: PROSTATITIS
     Dosage: 2X500
     Route: 048
     Dates: start: 20161121

REACTIONS (18)
  - Palpitations [Recovered/Resolved]
  - Arrhythmia [Recovered/Resolved]
  - Sensory disturbance [Recovered/Resolved]
  - Psychotic disorder [Recovered/Resolved]
  - Anxiety [Recovered/Resolved]
  - Tremor [Recovered/Resolved]
  - Dizziness [Recovered/Resolved]
  - Muscular weakness [Recovered/Resolved with Sequelae]
  - Hypersensitivity [Recovered/Resolved]
  - Fatigue [Recovered/Resolved]
  - Insomnia [Recovered/Resolved]
  - Coordination abnormal [Recovered/Resolved with Sequelae]
  - Asthenia [Recovered/Resolved with Sequelae]
  - Suicidal ideation [Not Recovered/Not Resolved]
  - Erythema [Recovered/Resolved]
  - Decreased immune responsiveness [Recovered/Resolved]
  - Balance disorder [Recovered/Resolved]
  - Fear of death [Recovered/Resolved]

NARRATIVE: CASE EVENT DATE: 20161121
